FAERS Safety Report 25272654 (Version 3)
Quarter: 2025Q4

REPORT INFORMATION
  Report Type: Spontaneous
  Country: JP (occurrence: JP)
  Receive Date: 20250506
  Receipt Date: 20251202
  Transmission Date: 20260117
  Serious: Yes (Other)
  Sender: ABBVIE
  Company Number: JP-JNJFOC-20250428936

PATIENT
  Age: 60 Year
  Sex: Male

DRUGS (1)
  1. IMBRUVICA [Suspect]
     Active Substance: IBRUTINIB
     Indication: Chronic lymphocytic leukaemia
     Dosage: DOSE UNKNOWN, FORM STRENGTH: 140 MG
     Route: 048

REACTIONS (1)
  - Purpura [Not Recovered/Not Resolved]
